FAERS Safety Report 6694565-7 (Version None)
Quarter: 2010Q2

REPORT INFORMATION
  Report Type: 
  Country: None (occurrence: None)
  Receive Date: 20100423
  Receipt Date: 20100420
  Transmission Date: 20101027
  Serious: No
  Sender: FDA-Public Use
  Company Number: US-MERCK-1003USA04807

PATIENT

DRUGS (3)
  1. EMEND [Suspect]
     Route: 048
  2. IFOSFAMIDE [Concomitant]
     Route: 065
  3. DEXAMETHASONE [Suspect]
     Route: 065

REACTIONS (1)
  - RESTLESSNESS [None]
